FAERS Safety Report 13429283 (Version 4)
Quarter: 2017Q2

REPORT INFORMATION
  Report Type: Report from Study
  Country: US (occurrence: US)
  Receive Date: 20170411
  Receipt Date: 20170630
  Transmission Date: 20170830
  Serious: Yes (Hospitalization)
  Sender: FDA-Public Use
  Company Number: US-ACTELION-A-US2016-138148

PATIENT
  Age: 67 Year
  Sex: Female
  Weight: 43.99 kg

DRUGS (8)
  1. VELETRI [Suspect]
     Active Substance: EPOPROSTENOL
     Indication: PULMONARY HYPERTENSION
     Dosage: 24 NG/KG PER MIN
     Route: 042
  2. COUMADIN [Concomitant]
     Active Substance: WARFARIN SODIUM
  3. REVATIO [Concomitant]
     Active Substance: SILDENAFIL CITRATE
  4. VELETRI [Suspect]
     Active Substance: EPOPROSTENOL
     Dosage: 22 NG/KG PER MIN
     Route: 042
     Dates: start: 20150918
  5. ADEMPAS [Suspect]
     Active Substance: RIOCIGUAT
     Indication: PULMONARY HYPERTENSION
     Route: 065
  6. IRON [Suspect]
     Active Substance: IRON
     Indication: ANAEMIA
     Dosage: 325 MG, BID
     Route: 065
  7. IRON [Suspect]
     Active Substance: IRON
     Dosage: 325 MG, QD
     Route: 065
  8. AMIODARONE [Concomitant]
     Active Substance: AMIODARONE

REACTIONS (28)
  - Dizziness [Unknown]
  - Bladder disorder [Unknown]
  - Diverticulitis [Unknown]
  - Abdominal pain [Unknown]
  - Pain [Unknown]
  - Dyspnoea [Unknown]
  - Chest pain [Unknown]
  - Palpitations [Unknown]
  - Weight decreased [Not Recovered/Not Resolved]
  - Constipation [Unknown]
  - Peripheral swelling [Unknown]
  - Blood pressure systolic decreased [Unknown]
  - Tachycardia [Unknown]
  - Anaemia [Unknown]
  - Decreased appetite [Not Recovered/Not Resolved]
  - Abdominal discomfort [Unknown]
  - Hypotension [Unknown]
  - Abdominal distension [Unknown]
  - Abdominal pain upper [Unknown]
  - Head discomfort [Unknown]
  - Headache [Recovered/Resolved]
  - Heart rate irregular [Unknown]
  - Dyspnoea exertional [Unknown]
  - Atrial fibrillation [Unknown]
  - Eye disorder [Unknown]
  - Cardiac flutter [Unknown]
  - Myalgia [Unknown]
  - Diarrhoea [Unknown]

NARRATIVE: CASE EVENT DATE: 20160805
